FAERS Safety Report 6499855-9 (Version None)
Quarter: 2009Q4

REPORT INFORMATION
  Report Type: 
  Country: None (occurrence: None)
  Receive Date: 20091214
  Receipt Date: 20091214
  Transmission Date: 20100525
  Serious: Yes (Other)
  Sender: FDA-Public Use
  Company Number: None

PATIENT
  Sex: Female
  Weight: 92.35 kg

DRUGS (1)
  1. TACROLIMUS [Suspect]

REACTIONS (1)
  - HAEMOLYTIC URAEMIC SYNDROME [None]
